FAERS Safety Report 6974969-5 (Version None)
Quarter: 2010Q3

REPORT INFORMATION
  Report Type: 
  Country: None (occurrence: None)
  Receive Date: 20100909
  Receipt Date: 20090115
  Transmission Date: 20110219
  Serious: Yes (Hospitalization)
  Sender: FDA-Public Use
  Company Number: US-WYE-H07710509

PATIENT
  Sex: Female

DRUGS (3)
  1. PRISTIQ [Suspect]
     Indication: MAJOR DEPRESSION
     Route: 048
     Dates: start: 20090101
  2. PRISTIQ [Suspect]
     Indication: ANXIETY
  3. KLONOPIN [Concomitant]
     Dosage: UNKNOWN

REACTIONS (2)
  - HYPONATRAEMIA [None]
  - POLYDIPSIA [None]
